FAERS Safety Report 6899429-1 (Version None)
Quarter: 2010Q3

REPORT INFORMATION
  Report Type: 
  Country: None (occurrence: None)
  Receive Date: 20100803
  Receipt Date: 20090616
  Transmission Date: 20110219
  Serious: No
  Sender: FDA-Public Use
  Company Number: US-PFIZER INC-2009179724

PATIENT
  Sex: Male

DRUGS (4)
  1. AMLODIPINE BESYLATE [Suspect]
  2. QUINAPRIL HCL [Suspect]
  3. TRICOR [Suspect]
  4. LOVASTATIN [Suspect]

REACTIONS (1)
  - HERPES ZOSTER [None]
